FAERS Safety Report 16097678 (Version 4)
Quarter: 2019Q3

REPORT INFORMATION
  Report Type: Spontaneous
  Country: JP (occurrence: JP)
  Receive Date: 20190320
  Receipt Date: 20190717
  Transmission Date: 20191004
  Serious: Yes (Hospitalization, Other)
  Sender: FDA-Public Use
  Company Number: JP-ASTRAZENECA-2019SE42446

PATIENT
  Age: 58 Year
  Sex: Male
  Weight: 69 kg

DRUGS (10)
  1. HEPARINOID [Concomitant]
     Active Substance: CHONDROITIN SULFATE (BOVINE)
     Indication: PROPHYLAXIS
     Route: 003
     Dates: start: 20190130, end: 20190322
  2. ISOTONIC SODIUM CHLORIDE SOLUTION [Concomitant]
     Active Substance: SODIUM CHLORIDE
     Indication: NON-SMALL CELL LUNG CANCER
     Route: 041
     Dates: start: 20181107, end: 20181219
  3. ISOTONIC SODIUM CHLORIDE SOLUTION [Concomitant]
     Active Substance: SODIUM CHLORIDE
     Indication: NON-SMALL CELL LUNG CANCER
     Route: 041
     Dates: start: 20190109, end: 20190109
  4. ALLOID G [Concomitant]
     Active Substance: SODIUM ALGINATE
     Indication: RADIATION OESOPHAGITIS
     Route: 048
     Dates: start: 20181003, end: 20181121
  5. TAGRISSO [Suspect]
     Active Substance: OSIMERTINIB
     Indication: NON-SMALL CELL LUNG CANCER
     Route: 048
     Dates: start: 20190130, end: 20190219
  6. ISOTONIC SODIUM CHLORIDE SOLUTION [Concomitant]
     Active Substance: SODIUM CHLORIDE
     Indication: NON-SMALL CELL LUNG CANCER
     Route: 041
     Dates: start: 20181107, end: 20181219
  7. IMFINZI [Suspect]
     Active Substance: DURVALUMAB
     Indication: NON-SMALL CELL LUNG CANCER
     Route: 041
     Dates: start: 20181107, end: 20190109
  8. ISOTONIC SODIUM CHLORIDE SOLUTION [Concomitant]
     Active Substance: SODIUM CHLORIDE
     Indication: NON-SMALL CELL LUNG CANCER
     Route: 041
     Dates: start: 20190109, end: 20190109
  9. MAGMITT [Concomitant]
     Active Substance: MAGNESIUM OXIDE
     Indication: CONSTIPATION
     Route: 048
     Dates: start: 20180921
  10. OINTMENT,HYDROPHILIC [Concomitant]
     Indication: PROPHYLAXIS
     Route: 003
     Dates: start: 20190130, end: 20190322

REACTIONS (4)
  - Radiation pneumonitis [Unknown]
  - Nausea [Recovered/Resolved]
  - Interstitial lung disease [Not Recovered/Not Resolved]
  - Metastases to central nervous system [Unknown]

NARRATIVE: CASE EVENT DATE: 20181107
